FAERS Safety Report 7125503-0 (Version None)
Quarter: 2010Q4

REPORT INFORMATION
  Report Type: 
  Country: None (occurrence: None)
  Receive Date: 20101129
  Receipt Date: 20101122
  Transmission Date: 20110411
  Serious: Yes (Death)
  Sender: FDA-Public Use
  Company Number: TN-SANOFI-AVENTIS-2010SA071176

PATIENT
  Age: 74 Year
  Sex: Male

DRUGS (7)
  1. PLAVIX [Suspect]
     Route: 048
     Dates: start: 20100217, end: 20101014
  2. PLAVIX [Suspect]
     Indication: STENT PLACEMENT
     Route: 048
     Dates: start: 20100217, end: 20101014
  3. CORVASAL [Concomitant]
     Route: 048
     Dates: end: 20101014
  4. ASPEGIC 1000 [Concomitant]
     Route: 048
     Dates: end: 20101014
  5. LASILIX [Concomitant]
     Route: 048
     Dates: end: 20101014
  6. DILTIAZEM [Concomitant]
     Route: 048
     Dates: end: 20101014
  7. GLUCOPHAGE [Concomitant]
     Route: 048
     Dates: end: 20101014

REACTIONS (2)
  - FALL [None]
  - HYPOGLYCAEMIA [None]
